FAERS Safety Report 20939609 (Version 1)
Quarter: 2022Q2

REPORT INFORMATION
  Report Type: Spontaneous
  Country: US (occurrence: US)
  Receive Date: 20220609
  Receipt Date: 20220609
  Transmission Date: 20220721
  Serious: No
  Sender: FDA-Public Use
  Company Number: US-009507513-2205USA004128

PATIENT
  Sex: Female

DRUGS (5)
  1. JANUVIA [Suspect]
     Active Substance: SITAGLIPTIN PHOSPHATE
     Indication: Diabetes mellitus
     Dosage: 100 MG/DAILY
     Route: 048
     Dates: start: 201906
  2. JARDIANCE [Concomitant]
     Active Substance: EMPAGLIFLOZIN
  3. REPATHA [Concomitant]
     Active Substance: EVOLOCUMAB
  4. ARMOUR THYROID [Concomitant]
     Active Substance: THYROID, PORCINE
  5. ASPIRIN [Concomitant]
     Active Substance: ASPIRIN

REACTIONS (1)
  - Alopecia [Not Recovered/Not Resolved]
